FAERS Safety Report 13879760 (Version 1)
Quarter: 2017Q3

REPORT INFORMATION
  Report Type: Spontaneous
  Country: US (occurrence: US)
  Receive Date: 20170818
  Receipt Date: 20170818
  Transmission Date: 20171127
  Serious: Yes (Other)
  Sender: FDA-Public Use
  Company Number: US-AMGEN-USASP2017121266

PATIENT
  Age: 50 Year
  Sex: Female

DRUGS (7)
  1. PREDNISONE. [Concomitant]
     Active Substance: PREDNISONE
     Route: 048
  2. THIOTEPA. [Concomitant]
     Active Substance: THIOTEPA
  3. CLADRIBINE. [Concomitant]
     Active Substance: CLADRIBINE
  4. ETANERCEPT [Suspect]
     Active Substance: ETANERCEPT
     Dosage: 25 MG, 2 TIMES/WK
     Route: 058
  5. ETANERCEPT [Suspect]
     Active Substance: ETANERCEPT
     Indication: IDIOPATHIC PNEUMONIA SYNDROME
     Dosage: 25 MG, 2 TIMES/WK
     Route: 058
  6. ETANERCEPT [Suspect]
     Active Substance: ETANERCEPT
     Dosage: 25 MG, 2 TIMES/WK
     Route: 058
  7. CYCLOSPORINE. [Concomitant]
     Active Substance: CYCLOSPORINE
     Dosage: UNK

REACTIONS (6)
  - Bronchitis haemophilus [Unknown]
  - Off label use [Unknown]
  - Bronchiolitis [Unknown]
  - Lung infiltration [Unknown]
  - Dyspnoea [Unknown]
  - Herpes zoster [Unknown]
